FAERS Safety Report 7293873-9 (Version None)
Quarter: 2011Q1

REPORT INFORMATION
  Report Type: 
  Country: None (occurrence: None)
  Receive Date: 20110215
  Receipt Date: 20101216
  Transmission Date: 20110831
  Serious: No
  Sender: FDA-Public Use
  Company Number: US-B.I. PHARMACEUTICALS,INC./RIDGEFIELD-2010-BP-14927BP

PATIENT
  Sex: Male

DRUGS (7)
  1. LIPITOR [Concomitant]
     Indication: BLOOD CHOLESTEROL INCREASED
     Dosage: 80 MG
     Route: 048
  2. PRADAXA [Suspect]
     Indication: ATRIAL FIBRILLATION
     Dosage: 300 MG
     Route: 048
     Dates: start: 20101117
  3. AVAPRO [Concomitant]
     Indication: HYPERTENSION
     Dosage: 150 MG
     Route: 048
  4. XALATAN [Concomitant]
     Indication: GLAUCOMA
  5. ATENOLOL [Concomitant]
     Indication: HYPERTENSION
     Dosage: 100 MG
     Route: 048
  6. NORVASC [Concomitant]
     Indication: HYPERTENSION
     Dosage: 10 MG
     Route: 048
  7. METOPROLOL [Concomitant]
     Indication: ATRIAL FIBRILLATION
     Dosage: 50 MG
     Route: 048

REACTIONS (4)
  - FALL [None]
  - RIB FRACTURE [None]
  - CONTUSION [None]
  - UPPER LIMB FRACTURE [None]
